FAERS Safety Report 16153111 (Version 1)
Quarter: 2019Q2

REPORT INFORMATION
  Report Type: Spontaneous
  Country: US (occurrence: US)
  Receive Date: 20190329
  Receipt Date: 20190329
  Transmission Date: 20190711
  Serious: No
  Sender: FDA-Public Use
  Company Number: None

PATIENT
  Sex: Female
  Weight: 65.09 kg

DRUGS (2)
  1. CARBOPLATIN (241240) [Suspect]
     Active Substance: CARBOPLATIN
     Dates: end: 20181226
  2. ETOPOSIDE. [Suspect]
     Active Substance: ETOPOSIDE
     Dates: end: 20181228

REACTIONS (7)
  - Disease progression [None]
  - Diarrhoea [None]
  - Weight decreased [None]
  - Hypophagia [None]
  - Hepatic lesion [None]
  - General physical health deterioration [None]
  - Gait inability [None]

NARRATIVE: CASE EVENT DATE: 20190308
